FAERS Safety Report 4384263-7 (Version None)
Quarter: 2004Q2

REPORT INFORMATION
  Report Type: 
  Country: None (occurrence: None)
  Receive Date: 20040618
  Receipt Date: 20040607
  Transmission Date: 20050107
  Serious: Yes (Hospitalization)
  Sender: FDA-Public Use
  Company Number: HQWYE113226MAY04

PATIENT
  Age: 3 Year
  Sex: Female

DRUGS (5)
  1. CHILDREN'S ADVIL [Suspect]
     Indication: PYREXIA
     Dosage: ORAL
     Route: 048
     Dates: start: 20040221, end: 20040226
  2. DOLIPRANE (PARACETAMOL) [Suspect]
     Indication: PYREXIA
     Dosage: ORAL
     Route: 048
     Dates: start: 20040221
  3. NISAPULVOL (BENZYL HYDROXYBENZOATE/ETHYLPARABEN E214/METHYLPARABEN E21 [Suspect]
     Indication: VARICELLA
     Dosage: TOPICAL
     Route: 061
     Dates: start: 20040221, end: 20040226
  4. FUCIDINE (FUSIDATE SODUIM) [Concomitant]
  5. MORNIFLUMATE [Concomitant]

REACTIONS (11)
  - ABSCESS [None]
  - BLOOD FIBRINOGEN INCREASED [None]
  - CELLULITIS [None]
  - CYTOLYTIC HEPATITIS [None]
  - ERYTHEMA [None]
  - FISTULA [None]
  - OEDEMA PERIPHERAL [None]
  - PAIN [None]
  - PURULENCE [None]
  - RASH PAPULAR [None]
  - STREPTOCOCCAL INFECTION [None]
